FAERS Safety Report 7807361-1 (Version None)
Quarter: 2011Q4

REPORT INFORMATION
  Report Type: 
  Country: None (occurrence: None)
  Receive Date: 20111011
  Receipt Date: 20111005
  Transmission Date: 20120403
  Serious: Yes (Death, Life-Threatening, Other)
  Sender: FDA-Public Use
  Company Number: JP-CELGENEUS-087-21880-11100642

PATIENT
  Sex: Male

DRUGS (11)
  1. REVLIMID [Suspect]
     Indication: MULTIPLE MYELOMA
     Dosage: 5 MILLIGRAM
     Route: 048
     Dates: start: 20100811, end: 20100817
  2. LENADEX [Suspect]
     Dosage: 40 MILLIGRAM
     Route: 048
     Dates: start: 20100909, end: 20100930
  3. PL [Concomitant]
     Indication: PROPHYLAXIS
     Dosage: 3 MILLIGRAM
     Route: 048
     Dates: start: 20100811, end: 20101002
  4. REVLIMID [Suspect]
     Dosage: 20 MILLIGRAM
     Route: 048
     Dates: start: 20100909, end: 20100929
  5. REVLIMID [Suspect]
     Dosage: 10 MILLIGRAM
     Route: 048
     Dates: start: 20100818, end: 20100831
  6. CEFAZOLIN SODIUM [Concomitant]
     Indication: PROPHYLAXIS
     Dosage: 18 MILLIGRAM
     Route: 048
     Dates: start: 20100811, end: 20101002
  7. LENADEX [Suspect]
     Indication: MULTIPLE MYELOMA
     Dosage: 40 MILLIGRAM
     Route: 048
     Dates: start: 20100811, end: 20100902
  8. DIFLUCAN [Concomitant]
     Indication: PROPHYLAXIS
     Dosage: 100 MILLIGRAM
     Route: 048
     Dates: start: 20100811, end: 20101002
  9. SELBEX [Concomitant]
     Indication: PROPHYLAXIS
     Dosage: 150 MILLIGRAM
     Route: 048
     Dates: start: 20100811, end: 20101002
  10. LANSOPRAZOLE [Concomitant]
     Indication: PROPHYLAXIS
     Dosage: 30 MILLIGRAM
     Route: 048
     Dates: start: 20100811, end: 20101002
  11. LOPERAMIDE HCL [Concomitant]
     Indication: PROPHYLAXIS
     Dosage: 1 MILLIGRAM
     Route: 048
     Dates: start: 20100811, end: 20101002

REACTIONS (7)
  - DYSGEUSIA [None]
  - SEPTIC SHOCK [None]
  - DIARRHOEA [None]
  - THROMBOCYTOPENIA [None]
  - MULTIPLE MYELOMA [None]
  - NEUTROPENIA [None]
  - PRURITUS [None]
